FAERS Safety Report 8462442-7 (Version None)
Quarter: 2012Q2

REPORT INFORMATION
  Report Type: 
  Country: None (occurrence: None)
  Receive Date: 20120625
  Receipt Date: 20120613
  Transmission Date: 20120825
  Serious: Yes (Other)
  Sender: FDA-Public Use
  Company Number: US-PFIZER INC-2011110239

PATIENT
  Sex: Female
  Weight: 61.224 kg

DRUGS (5)
  1. HUMIRA [Suspect]
     Dosage: UNK
  2. ENBREL [Suspect]
     Indication: PSORIATIC ARTHROPATHY
     Dosage: 25 MG, 2 TIMES/WK
     Dates: start: 20041001, end: 20050101
  3. ENBREL [Suspect]
  4. AZULFIDINE [Suspect]
     Dosage: UNK
     Dates: start: 20101001
  5. METHOTREXATE [Concomitant]
     Dosage: 8 MG, UNK
     Dates: start: 20030101

REACTIONS (14)
  - WHEEZING [None]
  - HYPOAESTHESIA [None]
  - MALAISE [None]
  - INJECTION SITE REACTION [None]
  - STOMATITIS [None]
  - HYPERSENSITIVITY [None]
  - DYSPNOEA [None]
  - PSORIATIC ARTHROPATHY [None]
  - RED BLOOD CELL SEDIMENTATION RATE INCREASED [None]
  - NAUSEA [None]
  - THERAPEUTIC RESPONSE DECREASED [None]
  - PRURITUS [None]
  - INJECTION SITE PAIN [None]
  - INFECTION [None]
